FAERS Safety Report 18717654 (Version 3)
Quarter: 2021Q1

REPORT INFORMATION
  Report Type: Spontaneous
  Country: CA (occurrence: CA)
  Receive Date: 20210108
  Receipt Date: 20210205
  Transmission Date: 20210419
  Serious: Yes (Death, Hospitalization, Other)
  Sender: FDA-Public Use
  Company Number: CA-PFIZER INC-2020257545

PATIENT
  Age: 59 Year
  Sex: Male
  Weight: 74.7 kg

DRUGS (8)
  1. ZIRABEV [Suspect]
     Active Substance: BEVACIZUMAB-BVZR
     Dosage: 750 MG, EVERY 2 WEEKS
     Route: 042
     Dates: start: 20200716
  2. ZIRABEV [Suspect]
     Active Substance: BEVACIZUMAB-BVZR
     Dosage: 750 MG, EVERY 2 WEEKS
     Route: 042
     Dates: start: 20201110
  3. ZIRABEV [Suspect]
     Active Substance: BEVACIZUMAB-BVZR
     Dosage: 750 MG, EVERY 2 WEEKS
     Route: 042
     Dates: start: 20201124, end: 20201124
  4. ZIRABEV [Suspect]
     Active Substance: BEVACIZUMAB-BVZR
     Dosage: 750 MG, EVERY 2 WEEKS
     Route: 042
     Dates: start: 20200702
  5. ZIRABEV [Suspect]
     Active Substance: BEVACIZUMAB-BVZR
     Dosage: 750 MG, EVERY 2 WEEKS
     Route: 042
     Dates: start: 20200817
  6. ZIRABEV [Suspect]
     Active Substance: BEVACIZUMAB-BVZR
     Dosage: 750 MG, EVERY 2 WEEKS
     Route: 042
     Dates: start: 20200702
  7. ZIRABEV [Suspect]
     Active Substance: BEVACIZUMAB-BVZR
     Dosage: 750 MG, EVERY 2 WEEKS
     Route: 042
     Dates: start: 20201027
  8. ZIRABEV [Suspect]
     Active Substance: BEVACIZUMAB-BVZR
     Dosage: 750 MG, EVERY 2 WEEKS
     Route: 042
     Dates: start: 20200831

REACTIONS (26)
  - Death [Fatal]
  - Blood pressure fluctuation [Unknown]
  - Blood glucose increased [Not Recovered/Not Resolved]
  - Red blood cell count decreased [Not Recovered/Not Resolved]
  - Heart rate abnormal [Unknown]
  - Blood lactate dehydrogenase increased [Not Recovered/Not Resolved]
  - Monocyte count decreased [Unknown]
  - Blood pressure decreased [Unknown]
  - Blood albumin decreased [Unknown]
  - Nasopharyngitis [Not Recovered/Not Resolved]
  - Wound infection [Not Recovered/Not Resolved]
  - Somnolence [Unknown]
  - Mean cell volume increased [Unknown]
  - Red cell distribution width increased [Not Recovered/Not Resolved]
  - Cough [Unknown]
  - Haemoglobin decreased [Not Recovered/Not Resolved]
  - Platelet count decreased [Not Recovered/Not Resolved]
  - Brain oedema [Unknown]
  - Blood creatinine decreased [Not Recovered/Not Resolved]
  - Haematocrit decreased [Not Recovered/Not Resolved]
  - Heart rate increased [Unknown]
  - Blood magnesium decreased [Unknown]
  - Blood pressure increased [Unknown]
  - Lymphocyte count decreased [Not Recovered/Not Resolved]
  - Mean cell haemoglobin increased [Unknown]
  - Immature granulocyte count increased [Not Recovered/Not Resolved]

NARRATIVE: CASE EVENT DATE: 20200702
